FAERS Safety Report 13679287 (Version 2)
Quarter: 2017Q2

REPORT INFORMATION
  Report Type: Spontaneous
  Country: GB (occurrence: GB)
  Receive Date: 20170622
  Receipt Date: 20170630
  Transmission Date: 20170830
  Serious: Yes (Hospitalization)
  Sender: FDA-Public Use
  Company Number: GB-TEVA-779339ROM

PATIENT
  Age: 87 Year
  Sex: Female

DRUGS (5)
  1. NITRAZEPAM [Suspect]
     Active Substance: NITRAZEPAM
     Indication: NEUROPSYCHIATRIC SYMPTOMS
     Dosage: 5MG WAS ADMINISTERED AT NIGHT
     Route: 048
  2. PROMETHAZINE [Suspect]
     Active Substance: PROMETHAZINE\PROMETHAZINE HYDROCHLORIDE
     Indication: NEUROPSYCHIATRIC SYMPTOMS
     Route: 048
  3. TRAZODONE [Suspect]
     Active Substance: TRAZODONE HYDROCHLORIDE
     Indication: NEUROPSYCHIATRIC SYMPTOMS
     Dosage: ADMINISTERED IN LIQUID FORM
     Route: 048
  4. LORAZEPAM. [Suspect]
     Active Substance: LORAZEPAM
     Indication: NEUROPSYCHIATRIC SYMPTOMS
     Route: 065
  5. AMISULPRIDE [Suspect]
     Active Substance: AMISULPRIDE
     Indication: NEUROPSYCHIATRIC SYMPTOMS
     Dosage: 25MG IN THE MORNING AND 50MG AT NIGHT
     Route: 048

REACTIONS (5)
  - Sedation [Recovering/Resolving]
  - Aggression [Recovering/Resolving]
  - Memory impairment [Recovered/Resolved]
  - Disinhibition [Recovering/Resolving]
  - Abnormal behaviour [Recovering/Resolving]
